FAERS Safety Report 15745829 (Version 1)
Quarter: 2018Q4

REPORT INFORMATION
  Report Type: Spontaneous
  Country: IS (occurrence: IS)
  Receive Date: 20181220
  Receipt Date: 20181220
  Transmission Date: 20190205
  Serious: Yes (Other)
  Sender: FDA-Public Use
  Company Number: IS-MYLANLABS-2018M1095417

PATIENT
  Age: 60 Year
  Sex: Female

DRUGS (5)
  1. NOREPINEPHRINE. [Suspect]
     Active Substance: NOREPINEPHRINE
     Dosage: UNK
  2. ACETYLSALICYLIC ACID [Suspect]
     Active Substance: ASPIRIN
     Indication: MYOCARDIAL INFARCTION
     Dosage: UNK
  3. ENOXAPARIN [Suspect]
     Active Substance: ENOXAPARIN
     Indication: MYOCARDIAL INFARCTION
     Dosage: UNK
  4. VASOPRESSIN. [Suspect]
     Active Substance: VASOPRESSIN
     Indication: MYOCARDIAL INFARCTION
     Dosage: UNK
  5. METOPROLOL. [Concomitant]
     Active Substance: METOPROLOL
     Indication: MYOCARDIAL INFARCTION

REACTIONS (4)
  - Acute myocardial infarction [Unknown]
  - Necrosis ischaemic [Unknown]
  - Gastrointestinal haemorrhage [Unknown]
  - Wernicke-Korsakoff syndrome [Unknown]
